FAERS Safety Report 11138516 (Version 1)
Quarter: 2015Q2

REPORT INFORMATION
  Report Type: Spontaneous
  Country: FR (occurrence: FR)
  Receive Date: 20150527
  Receipt Date: 20150527
  Transmission Date: 20150821
  Serious: Yes (Death, Hospitalization)
  Sender: FDA-Public Use
  Company Number: FR-BRISTOL-MYERS SQUIBB COMPANY-BMS-2015-031830

PATIENT
  Age: 90 Year
  Sex: Female

DRUGS (8)
  1. CARDENSIEL [Concomitant]
     Active Substance: BISOPROLOL FUMARATE
     Indication: PRODUCT USED FOR UNKNOWN INDICATION
     Route: 065
  2. PARACETAMOL [Concomitant]
     Active Substance: ACETAMINOPHEN
     Indication: PRODUCT USED FOR UNKNOWN INDICATION
     Route: 065
  3. AMLOR [Concomitant]
     Active Substance: AMLODIPINE BESYLATE
     Indication: PRODUCT USED FOR UNKNOWN INDICATION
     Route: 065
  4. ALDACTONE [Concomitant]
     Active Substance: SPIRONOLACTONE
     Indication: PRODUCT USED FOR UNKNOWN INDICATION
     Route: 065
  5. NOVONORM [Concomitant]
     Active Substance: REPAGLINIDE
     Indication: PRODUCT USED FOR UNKNOWN INDICATION
     Route: 065
  6. INEXIUM                            /01479302/ [Concomitant]
     Active Substance: ESOMEPRAZOLE MAGNESIUM
     Indication: PRODUCT USED FOR UNKNOWN INDICATION
     Route: 065
  7. COUMADINE [Suspect]
     Active Substance: WARFARIN SODIUM
     Indication: ARRHYTHMIA
     Dosage: 2 MG, QD
     Route: 048
     Dates: start: 20150327, end: 20150330
  8. CALCIPARINE [Suspect]
     Active Substance: HEPARIN CALCIUM
     Indication: ARRHYTHMIA
     Dosage: UNK, TID
     Route: 058
     Dates: start: 20150315, end: 20150331

REACTIONS (2)
  - Subdural haematoma [Not Recovered/Not Resolved]
  - Condition aggravated [Fatal]

NARRATIVE: CASE EVENT DATE: 20150202
